FAERS Safety Report 7457540-0 (Version None)
Quarter: 2011Q1

REPORT INFORMATION
  Report Type: 
  Country: None (occurrence: None)
  Receive Date: 20110302
  Receipt Date: 20101222
  Transmission Date: 20110831
  Serious: Yes (Death)
  Sender: FDA-Public Use
  Company Number: 163-21880-10111981

PATIENT
  Age: 69 Year
  Sex: Male
  Weight: 78.0187 kg

DRUGS (11)
  1. DEXAMETHASONE [Concomitant]
  2. LISINOPRIL [Concomitant]
  3. ACYCLOVIR [Concomitant]
  4. REVLIMID [Suspect]
     Indication: AMYLOIDOSIS
     Dosage: 25 MG, DAILY FOR 21 DAYS, PO
     Route: 048
     Dates: start: 20101105, end: 20101110
  5. LASIX [Concomitant]
  6. POTASSIUM CHLORIDE [Concomitant]
  7. VYTORIN [Concomitant]
  8. PLAVIX [Concomitant]
  9. DIFLUCAN [Concomitant]
  10. LOPRESSOR [Concomitant]
  11. PROCRIT [Concomitant]

REACTIONS (1)
  - CARDIAC ARREST [None]
